FAERS Safety Report 24715122 (Version 1)
Quarter: 2024Q4

REPORT INFORMATION
  Report Type: Spontaneous
  Country: JP (occurrence: JP)
  Receive Date: 20241210
  Receipt Date: 20241210
  Transmission Date: 20250114
  Serious: Yes (Death)
  Sender: AMGEN
  Company Number: JP-AMGEN-JPNSP2024240003

PATIENT
  Sex: Female

DRUGS (2)
  1. EVENITY [Suspect]
     Active Substance: ROMOSOZUMAB-AQQG
     Indication: Osteoporosis
     Dosage: 210 MILLIGRAM
     Route: 058
     Dates: start: 20240927
  2. ZOMETA [Concomitant]
     Active Substance: ZOLEDRONIC ACID
     Indication: Ovarian cancer
     Dosage: UNK
     Route: 065

REACTIONS (1)
  - Ovarian cancer [Fatal]

NARRATIVE: CASE EVENT DATE: 20240101
